FAERS Safety Report 12159735 (Version 2)
Quarter: 2016Q2

REPORT INFORMATION
  Report Type: Spontaneous
  Country: TR (occurrence: TR)
  Receive Date: 20160308
  Receipt Date: 20160401
  Transmission Date: 20160815
  Serious: Yes (Death)
  Sender: FDA-Public Use
  Company Number: PHHY2016TR029378

PATIENT
  Age: 63 Year
  Sex: Female
  Weight: 70 kg

DRUGS (1)
  1. REVOLADE [Suspect]
     Active Substance: ELTROMBOPAG
     Indication: IMMUNE THROMBOCYTOPENIC PURPURA
     Dosage: 50 MG, QD
     Route: 048
     Dates: start: 20160215

REACTIONS (12)
  - Blood potassium increased [Fatal]
  - Blood calcium decreased [Unknown]
  - Syncope [Fatal]
  - Blood lactate dehydrogenase increased [Fatal]
  - Cardiac arrest [Fatal]
  - Fibrin D dimer increased [Fatal]
  - White blood cell count increased [Unknown]
  - Cerebrovascular accident [Fatal]
  - Haemoglobin decreased [Fatal]
  - Embolism [Fatal]
  - Blood sodium decreased [Fatal]
  - Myocardial infarction [Fatal]

NARRATIVE: CASE EVENT DATE: 20160301
